FAERS Safety Report 5465581-8 (Version None)
Quarter: 2007Q3

REPORT INFORMATION
  Report Type: 
  Country: None (occurrence: None)
  Receive Date: 20070919
  Receipt Date: 20070903
  Transmission Date: 20080115
  Serious: Yes (Disabling, Other)
  Sender: FDA-Public Use
  Company Number: 2007RR-09834

PATIENT
  Age: 45 Year
  Sex: Female

DRUGS (2)
  1. FLUOXETINE [Suspect]
     Dosage: 20 MG, ORAL
     Route: 048
     Dates: start: 20000101
  2. PFIZER CHAMPIX (VARENICLINE TARTRATE) [Suspect]
     Dosage: 1 MG, BID, ORAL
     Route: 048
     Dates: start: 20070730, end: 20070817

REACTIONS (2)
  - DEPRESSION [None]
  - DRUG INTERACTION [None]
